FAERS Safety Report 15557040 (Version 2)
Quarter: 2018Q4

REPORT INFORMATION
  Report Type: Report from Study
  Country: FR (occurrence: FR)
  Receive Date: 20181026
  Receipt Date: 20181030
  Transmission Date: 20190205
  Serious: Yes (Other)
  Sender: FDA-Public Use
  Company Number: PHHY2018FR005072

PATIENT
  Age: 67 Year
  Sex: Female

DRUGS (35)
  1. MYFORTIC [Suspect]
     Active Substance: MYCOPHENOLATE SODIUM
     Dosage: 360 MG, QD
     Route: 065
     Dates: start: 20150623, end: 20150907
  2. ACLASTA [Concomitant]
     Active Substance: ZOLEDRONIC ACID
     Indication: OSTEOPOROTIC FRACTURE
     Dosage: 1 INFUSION PER YEAR
     Route: 041
     Dates: start: 201505, end: 201505
  3. OROCAL D3 [Concomitant]
     Active Substance: CALCIUM CARBONATE\CHOLECALCIFEROL
     Indication: OSTEOPOROTIC FRACTURE
     Dosage: 1 TO 2 TABLETS, QD
     Route: 065
     Dates: start: 20131007, end: 20141007
  4. ATROVENT [Concomitant]
     Active Substance: IPRATROPIUM BROMIDE
     Indication: PNEUMONIA
     Dosage: 3 DF, QD
     Route: 065
     Dates: start: 201505, end: 201505
  5. SOLU-MEDROL [Concomitant]
     Active Substance: METHYLPREDNISOLONE SODIUM SUCCINATE
     Indication: NEURALGIA
  6. LASILIX [Concomitant]
     Active Substance: FUROSEMIDE
     Indication: PRODUCT USED FOR UNKNOWN INDICATION
     Dosage: UNK
     Route: 065
  7. MYFORTIC [Suspect]
     Active Substance: MYCOPHENOLATE SODIUM
     Indication: LIVER TRANSPLANT
     Dosage: 1440 MG, QD
     Route: 065
     Dates: start: 20130410, end: 20130923
  8. MYFORTIC [Suspect]
     Active Substance: MYCOPHENOLATE SODIUM
     Dosage: 1440 MG, QD
     Route: 048
     Dates: start: 20150908
  9. PROGRAF [Concomitant]
     Active Substance: TACROLIMUS\TACROLIMUS ANHYDROUS
     Dosage: 1 MG, QD
     Route: 065
     Dates: start: 20131122, end: 20150622
  10. SKENAN [Concomitant]
     Active Substance: MORPHINE SULFATE
     Indication: BACK PAIN
     Dosage: UNK
     Route: 065
     Dates: start: 20131107, end: 20131120
  11. MORPHINE SULFATE. [Concomitant]
     Active Substance: MORPHINE SULFATE
     Indication: BACK PAIN
     Dosage: 10 MG, QD
     Route: 065
     Dates: start: 20131107
  12. PARACETAMOL [Concomitant]
     Active Substance: ACETAMINOPHEN
     Indication: BACK PAIN
     Dosage: 3 G, QD
     Route: 065
     Dates: start: 20131107
  13. LYRICA [Concomitant]
     Active Substance: PREGABALIN
     Indication: NEURALGIA
     Dosage: 100 MG, QD
     Route: 065
     Dates: start: 20131121
  14. SPIRAMYCIN [Concomitant]
     Active Substance: SPIRAMYCIN
     Indication: PNEUMONIA
     Dosage: UNK
     Route: 065
     Dates: start: 201505, end: 201505
  15. DUROGESIC [Concomitant]
     Active Substance: FENTANYL
     Indication: BACK PAIN
     Dosage: 50 MG, QD
     Route: 065
     Dates: start: 201312
  16. ACLASTA [Concomitant]
     Active Substance: ZOLEDRONIC ACID
     Dosage: 1 INFUSION PER YEAR
     Route: 041
     Dates: start: 201610, end: 201610
  17. OMEPRAZOLE. [Concomitant]
     Active Substance: OMEPRAZOLE
     Dosage: 40 MG, QD
     Route: 065
     Dates: start: 20150630
  18. RULID [Concomitant]
     Active Substance: ROXITHROMYCIN
     Indication: PNEUMONIA
     Dosage: 150 MG, BID
     Route: 065
     Dates: start: 201505, end: 201505
  19. NO TREATMENT RECEIVED [Suspect]
     Active Substance: UNSPECIFIED INGREDIENT
     Indication: PRODUCT USED FOR UNKNOWN INDICATION
     Route: 065
  20. PROGRAF [Concomitant]
     Active Substance: TACROLIMUS\TACROLIMUS ANHYDROUS
     Dosage: 2 MG, QD
     Route: 065
     Dates: start: 20150623, end: 20160801
  21. AUGMENTIN [Concomitant]
     Active Substance: AMOXICILLIN\CLAVULANATE POTASSIUM
     Indication: PNEUMONIA
     Dosage: 1 G, 3 DAYS
     Route: 065
     Dates: start: 20160312, end: 20160321
  22. CEFTRIAXONE. [Concomitant]
     Active Substance: CEFTRIAXONE
     Indication: PNEUMONIA
     Dosage: 1 G, QD
     Route: 065
     Dates: start: 201505
  23. BRICANYL [Concomitant]
     Active Substance: TERBUTALINE SULFATE
     Indication: PNEUMONIA
     Dosage: 6 DF, QD
     Route: 065
     Dates: start: 201505, end: 201505
  24. SOLU-MEDROL [Concomitant]
     Active Substance: METHYLPREDNISOLONE SODIUM SUCCINATE
     Indication: PNEUMONIA
     Dosage: 80 MG, QD
     Route: 065
     Dates: start: 20150511, end: 20150515
  25. ROVAMYCINE [Concomitant]
     Active Substance: SPIRAMYCIN
     Indication: PRODUCT USED FOR UNKNOWN INDICATION
     Route: 065
  26. MYFORTIC [Suspect]
     Active Substance: MYCOPHENOLATE SODIUM
     Indication: IMMUNOSUPPRESSANT DRUG THERAPY
     Dosage: 720 MG, QD
     Route: 065
     Dates: start: 20130924, end: 20150622
  27. PROGRAF [Concomitant]
     Active Substance: TACROLIMUS\TACROLIMUS ANHYDROUS
     Dosage: 1 MG, QD
     Route: 065
     Dates: start: 20160802
  28. LYRICA [Concomitant]
     Active Substance: PREGABALIN
     Dosage: 50 MG, QD
     Route: 065
     Dates: start: 20131107
  29. LASIX [Concomitant]
     Active Substance: FUROSEMIDE
     Indication: DYSPNOEA EXERTIONAL
     Dosage: 40 MG, QD
     Route: 065
     Dates: start: 20140206
  30. OMEPRAZOLE. [Concomitant]
     Active Substance: OMEPRAZOLE
     Indication: VOMITING
     Dosage: 80 MG, QD
     Route: 065
     Dates: start: 20150623, end: 20150629
  31. DEDROGYL [Concomitant]
     Active Substance: CALCIFEDIOL
     Indication: OSTEOPOROTIC FRACTURE
     Dosage: 6 DRP, QD
     Route: 065
     Dates: start: 20131007, end: 20170907
  32. ROCEPHINE [Concomitant]
     Active Substance: CEFTRIAXONE SODIUM
     Indication: PRODUCT USED FOR UNKNOWN INDICATION
     Dosage: UNK
     Route: 065
     Dates: end: 201505
  33. SKENAN [Concomitant]
     Active Substance: MORPHINE SULFATE
     Dosage: 60 MG, QD
     Route: 065
     Dates: start: 20131121
  34. SERETIDE [Concomitant]
     Active Substance: FLUTICASONE PROPIONATE\SALMETEROL XINAFOATE
     Indication: PNEUMONIA
     Dosage: 1 DF, BID
     Route: 065
     Dates: start: 201505, end: 201505
  35. PROGRAF [Concomitant]
     Active Substance: TACROLIMUS\TACROLIMUS ANHYDROUS
     Indication: IMMUNOSUPPRESSANT DRUG THERAPY
     Dosage: 2 MG, QD
     Route: 065
     Dates: start: 20130802, end: 20131121

REACTIONS (4)
  - Pneumobilia [Unknown]
  - Biliary dilatation [Unknown]
  - Sphincter of Oddi dysfunction [Unknown]
  - Bile duct stone [Not Recovered/Not Resolved]

NARRATIVE: CASE EVENT DATE: 20171003
